FAERS Safety Report 8351985-2 (Version None)
Quarter: 2012Q2

REPORT INFORMATION
  Report Type: 
  Country: None (occurrence: None)
  Receive Date: 20120510
  Receipt Date: 20120510
  Transmission Date: 20120825
  Serious: No
  Sender: FDA-Public Use
  Company Number: None

PATIENT
  Age: 59 Year
  Sex: Female
  Weight: 61.2356 kg

DRUGS (1)
  1. CIPROFLOXACIN [Suspect]
     Indication: CYSTITIS
     Dosage: TWICE DAILY EVERY 12 HOURS 2 DAYS -4 PILLS-
     Dates: start: 20120422, end: 20120423

REACTIONS (6)
  - VITREOUS FLOATERS [None]
  - FEELING ABNORMAL [None]
  - INSOMNIA [None]
  - NIGHTMARE [None]
  - ANXIETY [None]
  - BLOOD PRESSURE INCREASED [None]
